FAERS Safety Report 19397340 (Version 1)
Quarter: 2021Q2

REPORT INFORMATION
  Report Type: Spontaneous
  Country: GB (occurrence: GB)
  Receive Date: 20210610
  Receipt Date: 20210610
  Transmission Date: 20210717
  Serious: Yes (Disabling, Other)
  Sender: FDA-Public Use
  Company Number: GB-SUN PHARMACEUTICAL INDUSTRIES LTD-2021RR-300105

PATIENT
  Age: 79 Year
  Sex: Female
  Weight: 52.61 kg

DRUGS (2)
  1. GANFORT [Concomitant]
     Active Substance: BIMATOPROST\TIMOLOL
     Indication: ILL-DEFINED DISORDER
     Dosage: UNK
     Route: 065
  2. ATORVASTATIN [Suspect]
     Active Substance: ATORVASTATIN
     Indication: HYPERTENSION
     Dosage: 10 MG  ONCE A DAY
     Route: 048
     Dates: start: 20181218, end: 20190614

REACTIONS (1)
  - Adverse drug reaction [Not Recovered/Not Resolved]
